FAERS Safety Report 11394830 (Version 1)
Quarter: 2015Q3

REPORT INFORMATION
  Report Type: Spontaneous
  Country: US (occurrence: None)
  Receive Date: 20150817
  Receipt Date: 20150817
  Transmission Date: 20151125
  Serious: Yes (Hospitalization)
  Sender: FDA-Public Use
  Company Number: COM-003458

PATIENT
  Age: 4 Month
  Sex: Male

DRUGS (1)
  1. PEDIATRIC ELECTROLYTE [Suspect]
     Active Substance: POTASSIUM CITRATE\SODIUM CITRATE\ZINC
     Dates: start: 20150803

REACTIONS (2)
  - Product contamination physical [None]
  - Hospitalisation [None]

NARRATIVE: CASE EVENT DATE: 20150803
